FAERS Safety Report 5338439-2 (Version None)
Quarter: 2007Q2

REPORT INFORMATION
  Report Type: 
  Country: None (occurrence: None)
  Receive Date: 20070405
  Receipt Date: 20061108
  Transmission Date: 20071010
  Serious: No
  Sender: FDA-Public Use
  Company Number: US200611001641

PATIENT
  Age: 42 Year
  Sex: Female

DRUGS (9)
  1. CYMBALTA [Suspect]
     Indication: FIBROMYALGIA
     Dosage: SEE IMAGE
     Route: 048
     Dates: start: 20060501, end: 20061001
  2. CYMBALTA [Suspect]
     Indication: FIBROMYALGIA
     Dosage: SEE IMAGE
     Route: 048
     Dates: start: 20061001, end: 20061103
  3. CYMBALTA [Suspect]
     Indication: FIBROMYALGIA
     Dosage: SEE IMAGE
     Route: 048
     Dates: start: 20061103, end: 20061107
  4. CYMBALTA [Suspect]
     Indication: FIBROMYALGIA
     Dosage: SEE IMAGE
     Route: 048
     Dates: start: 20061108
  5. NEXIUM [Concomitant]
  6. ZYRTEC [Concomitant]
  7. ELAVIL [Concomitant]
  8. FLEXERIL [Concomitant]
  9. KLONOPIN [Concomitant]

REACTIONS (6)
  - ABDOMINAL DISCOMFORT [None]
  - ALOPECIA [None]
  - DEPRESSION [None]
  - DIARRHOEA [None]
  - HYPERHIDROSIS [None]
  - PAIN [None]
